FAERS Safety Report 9789065 (Version 1)
Quarter: 2013Q4

REPORT INFORMATION
  Report Type: Spontaneous
  Country: US (occurrence: US)
  Receive Date: 20131230
  Receipt Date: 20131230
  Transmission Date: 20140711
  Serious: No
  Sender: FDA-Public Use
  Company Number: US-ASTRAZENECA-2013SE91787

PATIENT
  Age: 84 Year
  Sex: Female

DRUGS (1)
  1. BRILINTA [Suspect]
     Indication: STENT PLACEMENT
     Route: 048
     Dates: start: 201310

REACTIONS (2)
  - Adverse event [Not Recovered/Not Resolved]
  - Dyspnoea [Not Recovered/Not Resolved]
